FAERS Safety Report 8769112 (Version 4)
Quarter: 2012Q4

REPORT INFORMATION
  Report Type: 
  Country: VE (occurrence: VE)
  Receive Date: 20120904
  Receipt Date: 20121114
  Transmission Date: 20130627
  Serious: Yes (Hospitalization, Other)
  Sender: FDA-Public Use
  Company Number: VE-ELI_LILLY_AND_COMPANY-VE201206006477

PATIENT
  Age: 20 None
  Sex: Female

DRUGS (5)
  1. HUMALOG 25% LISPRO, 75% NPL [Suspect]
     Indication: TYPE 2 DIABETES MELLITUS
     Dosage: 12 u, each morning
     Dates: start: 20120618
  2. HUMALOG 25% LISPRO, 75% NPL [Suspect]
     Dosage: 12 u, qd (lunch)
     Dates: start: 20120618
  3. HUMALOG 25% LISPRO, 75% NPL [Suspect]
     Dosage: 12 u, each evening
     Dates: start: 20120618
  4. GLUCOPHAGE [Concomitant]
     Dosage: UNK
  5. PRENATAL VITAMINS                  /01549301/ [Concomitant]

REACTIONS (4)
  - Caesarean section [Recovered/Resolved]
  - Blood glucose abnormal [Recovered/Resolved]
  - Hypertension [Recovering/Resolving]
  - Exposure during pregnancy [Recovered/Resolved]
